FAERS Safety Report 5011174-6 (Version None)
Quarter: 2006Q2

REPORT INFORMATION
  Report Type: 
  Country: None (occurrence: None)
  Receive Date: 20060523
  Receipt Date: 20060523
  Transmission Date: 20061013
  Serious: Yes (Hospitalization)
  Sender: FDA-Public Use
  Company Number: None

PATIENT
  Age: 60 Year
  Sex: Male

DRUGS (1)
  1. WARFARIN SODIUM [Suspect]
     Indication: ATRIAL FIBRILLATION

REACTIONS (6)
  - CEREBROVASCULAR ACCIDENT [None]
  - DYSSTASIA [None]
  - HAEMATURIA [None]
  - INTERNATIONAL NORMALISED RATIO DECREASED [None]
  - NEPHROLITHIASIS [None]
  - PAIN [None]
